FAERS Safety Report 15826800 (Version 6)
Quarter: 2019Q1

REPORT INFORMATION
  Report Type: Report from Study
  Country: GB (occurrence: GB)
  Receive Date: 20190115
  Receipt Date: 20190214
  Transmission Date: 20190417
  Serious: Yes (Death)
  Sender: FDA-Public Use
  Company Number: GB-PFIZER INC-2019017200

PATIENT
  Sex: Male

DRUGS (8)
  1. DESMETHYLDIAZEPAM [Interacting]
     Active Substance: NORDAZEPAM
     Dosage: UNK
  2. SODIUM OXYBATE. [Interacting]
     Active Substance: SODIUM OXYBATE
     Dosage: UNK
  3. TEMAZEPAM. [Interacting]
     Active Substance: TEMAZEPAM
     Dosage: UNK
  4. KETAMINE HCL [Suspect]
     Active Substance: KETAMINE HYDROCHLORIDE
     Dosage: UNK
  5. FLUOXETINE [Interacting]
     Active Substance: FLUOXETINE HYDROCHLORIDE
     Dosage: UNK
  6. DIAZEPAM. [Interacting]
     Active Substance: DIAZEPAM
     Dosage: UNK
  7. OXAZEPAM. [Interacting]
     Active Substance: OXAZEPAM
     Dosage: UNK
  8. MEPHEDRONE [Interacting]
     Active Substance: MEPHEDRONE
     Dosage: UNK

REACTIONS (2)
  - Toxicity to various agents [Fatal]
  - Drug interaction [Fatal]
